FAERS Safety Report 4715083-9 (Version None)
Quarter: 2005Q3

REPORT INFORMATION
  Report Type: 
  Country: None (occurrence: None)
  Receive Date: 20050715
  Receipt Date: 20050706
  Transmission Date: 20060218
  Serious: Yes (Hospitalization)
  Sender: FDA-Public Use
  Company Number: FR-SANOFI-SYNTHELABO-A02200501790

PATIENT
  Age: 67 Year
  Sex: Female
  Weight: 51 kg

DRUGS (6)
  1. STILNOX [Suspect]
     Indication: SLEEP DISORDER
     Dosage: UNK
     Route: 048
     Dates: start: 20050503
  2. TERALITHE [Suspect]
     Indication: PSYCHOTIC DISORDER
     Route: 048
     Dates: start: 20050503
  3. RISPERDAL [Suspect]
     Indication: PSYCHOTIC DISORDER
     Route: 048
     Dates: start: 20050503
  4. LEVOTHYROX [Concomitant]
     Indication: HYPOTHYROIDISM
     Route: 048
     Dates: start: 20050503
  5. TITANOREINE [Concomitant]
     Indication: HAEMORRHOIDS
     Dosage: UNK
     Route: 054
     Dates: start: 20050503
  6. DAFLON [Concomitant]
     Indication: HAEMORRHOIDS
     Dosage: 1500 MG
     Route: 048
     Dates: start: 20050503, end: 20050506

REACTIONS (3)
  - ASTHENIA [None]
  - ORTHOSTATIC HYPOTENSION [None]
  - VERTIGO [None]
